FAERS Safety Report 6863474-2 (Version None)
Quarter: 2010Q3

REPORT INFORMATION
  Report Type: 
  Country: None (occurrence: None)
  Receive Date: 20100721
  Receipt Date: 20100715
  Transmission Date: 20110219
  Serious: Yes (Death, Life-Threatening, Hospitalization)
  Sender: FDA-Public Use
  Company Number: PL-PFIZER INC-2006044370

PATIENT
  Age: 53 Year
  Sex: Male
  Weight: 63 kg

DRUGS (23)
  1. SUNITINIB MALATE [Suspect]
     Indication: METASTATIC RENAL CELL CARCINOMA
     Dosage: 50 MG, 1X/DAY
     Dates: start: 20060127, end: 20060223
  2. RED BLOOD CELLS [Concomitant]
     Route: 042
     Dates: start: 20060301, end: 20060301
  3. RED BLOOD CELLS [Concomitant]
     Route: 042
     Dates: start: 20060324, end: 20060324
  4. CYCLONAMINE [Concomitant]
     Route: 042
     Dates: start: 20060301, end: 20060301
  5. EXACYL [Concomitant]
     Route: 042
     Dates: start: 20060301, end: 20060301
  6. RANITIDINE [Concomitant]
     Route: 042
     Dates: start: 20060301, end: 20060301
  7. MORPHINE [Concomitant]
     Route: 058
     Dates: start: 20060301, end: 20060301
  8. PLASMA [Concomitant]
     Route: 042
     Dates: start: 20060301, end: 20060301
  9. PLASMA [Concomitant]
     Route: 042
     Dates: start: 20060324, end: 20060324
  10. BUSCOPAN [Concomitant]
     Route: 030
     Dates: start: 20060301, end: 20060301
  11. HYDROCORTISONE [Concomitant]
     Route: 042
     Dates: start: 20060301, end: 20060301
  12. PYRALGIN [Concomitant]
     Route: 042
     Dates: start: 20060301, end: 20060301
  13. ALBUMIN HUMAN [Concomitant]
     Route: 042
     Dates: start: 20060301, end: 20060301
  14. TRAMAL [Concomitant]
     Route: 042
     Dates: start: 20060301, end: 20060301
  15. OMEPRAZOLE [Concomitant]
     Route: 048
     Dates: start: 20060317, end: 20060325
  16. AUGMENTIN '125' [Concomitant]
     Route: 048
     Dates: start: 20060317, end: 20060318
  17. MORPHINE SULFATE [Concomitant]
     Route: 048
     Dates: start: 20060317, end: 20060324
  18. FORTUM [Concomitant]
     Route: 042
     Dates: start: 20060318, end: 20060325
  19. CALCIUM [Concomitant]
     Route: 042
     Dates: start: 20060318, end: 20060325
  20. TRILAC [Concomitant]
     Route: 048
     Dates: start: 20060320, end: 20060324
  21. DIFLUCAN [Concomitant]
     Route: 042
     Dates: start: 20060320, end: 20060325
  22. RANIGAST [Concomitant]
     Route: 042
     Dates: start: 20060322, end: 20060324
  23. TAZOCIN [Concomitant]
     Route: 042
     Dates: start: 20060324, end: 20060325

REACTIONS (3)
  - ABSCESS [None]
  - GASTROINTESTINAL HAEMORRHAGE [None]
  - ILEUS [None]
